FAERS Safety Report 22599822 (Version 1)
Quarter: 2023Q2

REPORT INFORMATION
  Report Type: Spontaneous
  Country: US (occurrence: US)
  Receive Date: 20230614
  Receipt Date: 20230614
  Transmission Date: 20230721
  Serious: No
  Sender: FDA-Public Use
  Company Number: US-SA-SAC20230612001456

PATIENT
  Age: 49 Year
  Sex: Male
  Weight: 86.168 kg

DRUGS (1)
  1. DUPIXENT [Suspect]
     Active Substance: DUPILUMAB
     Indication: Neurodermatitis
     Dosage: 300 MG, QOW
     Route: 058
     Dates: start: 202305

REACTIONS (3)
  - Pain [Not Recovered/Not Resolved]
  - Administration site acne [Not Recovered/Not Resolved]
  - Injection site nodule [Not Recovered/Not Resolved]

NARRATIVE: CASE EVENT DATE: 20230101
